APPROVED DRUG PRODUCT: PROCHLORPERAZINE
Active Ingredient: PROCHLORPERAZINE EDISYLATE
Strength: EQ 5MG BASE/ML
Dosage Form/Route: INJECTABLE;INJECTION
Application: A087759 | Product #001
Applicant: BAXTER HEALTHCARE CORP ANESTHESIA AND CRITICAL CARE
Approved: Oct 1, 1982 | RLD: No | RS: No | Type: DISCN